FAERS Safety Report 9014197 (Version 5)
Quarter: 2013Q2

REPORT INFORMATION
  Report Type: Report from Study
  Country: DE (occurrence: DE)
  Receive Date: 20130115
  Receipt Date: 20130606
  Transmission Date: 20140414
  Serious: Yes (Hospitalization)
  Sender: FDA-Public Use
  Company Number: PHHO2013DE000710

PATIENT
  Age: 65 Year
  Sex: Female
  Weight: 62.3 kg

DRUGS (13)
  1. AMN107 [Suspect]
     Indication: ACUTE LYMPHOCYTIC LEUKAEMIA
     Dosage: 400 MG, BID
     Route: 048
     Dates: start: 20121220, end: 20130118
  2. AMN107 [Suspect]
     Dosage: NO TREATMENT
     Dates: start: 20130119, end: 20130119
  3. AMN107 [Suspect]
     Dosage: 400 MG, BID
     Route: 048
     Dates: start: 20130120
  4. DEXAMETHASONE SANDOZ [Suspect]
     Indication: ACUTE LYMPHOCYTIC LEUKAEMIA
     Dosage: 4 MG, UNK
     Route: 030
     Dates: start: 20121219
  5. VINCRISTINE [Suspect]
     Indication: ACUTE LYMPHOCYTIC LEUKAEMIA
     Dosage: 1 MG, UNK
     Route: 042
     Dates: start: 20121219
  6. METHOTREXATE [Suspect]
     Indication: ACUTE LYMPHOCYTIC LEUKAEMIA
     Dosage: 15 MG, UNK
     Route: 030
     Dates: start: 20121219
  7. TARGIN [Suspect]
     Indication: BACK PAIN
     Dosage: 5 MG, BID
     Route: 048
     Dates: start: 20121213
  8. ARA-C [Concomitant]
     Indication: ACUTE LYMPHOCYTIC LEUKAEMIA
     Dosage: 40 MG, UNK
     Route: 030
     Dates: start: 20121219
  9. ACICLOVIR [Concomitant]
     Indication: INFECTION PROPHYLAXIS
     Dosage: 200 MG, QID
     Dates: start: 20121214, end: 20130118
  10. COTRIM FORTE [Concomitant]
     Indication: INFECTION PROPHYLAXIS
     Dosage: 960 MG, TIW (MWF)
     Dates: start: 20121214, end: 20130118
  11. FLUCONAZOLE [Concomitant]
     Indication: INFECTION PROPHYLAXIS
     Dosage: 200 MG, DAILY
     Dates: start: 20121214, end: 20130118
  12. ONDANSETRON [Concomitant]
     Indication: NAUSEA
     Dosage: 8 MG, BID
     Dates: end: 20130118
  13. PANTOPRAZOL [Concomitant]
     Indication: GASTRITIS
     Dosage: 40 MG, BID

REACTIONS (3)
  - Nausea [Recovered/Resolved]
  - Vomiting [Recovered/Resolved]
  - Viral infection [Recovered/Resolved]
